FAERS Safety Report 6977415-0 (Version None)
Quarter: 2010Q3

REPORT INFORMATION
  Report Type: 
  Country: None (occurrence: None)
  Receive Date: 20100910
  Receipt Date: 20100902
  Transmission Date: 20110219
  Serious: Yes (Hospitalization, Other)
  Sender: FDA-Public Use
  Company Number: BR-ABBOTT-10P-020-0667899-00

PATIENT
  Sex: Male
  Weight: 78.1 kg

DRUGS (4)
  1. HUMIRA [Suspect]
     Indication: PSORIASIS
     Dosage: INDUCTION DOSE:80MG - 40MG, 14 DAYS LATER.
     Route: 058
     Dates: start: 20091101
  2. CALCIUM [Concomitant]
     Indication: PRODUCT USED FOR UNKNOWN INDICATION
     Route: 048
     Dates: start: 20100611
  3. ENALAPRIL [Concomitant]
     Indication: HYPERTENSION
     Route: 048
  4. HYDROCHLOROTHIAZIDE [Concomitant]
     Indication: HYPERTENSION
     Route: 048

REACTIONS (5)
  - ANAEMIA [None]
  - DIABETES MELLITUS [None]
  - GASTRIC HAEMORRHAGE [None]
  - PSORIASIS [None]
  - VISUAL IMPAIRMENT [None]
